FAERS Safety Report 21890669 (Version 1)
Quarter: 2023Q1

REPORT INFORMATION
  Report Type: Spontaneous
  Country: FR (occurrence: FR)
  Receive Date: 20230120
  Receipt Date: 20230120
  Transmission Date: 20230418
  Serious: Yes (Death)
  Sender: FDA-Public Use
  Company Number: None

PATIENT
  Age: 30 Year
  Sex: Male

DRUGS (7)
  1. CLONAZEPAM [Suspect]
     Active Substance: CLONAZEPAM
  2. BUPRENORPHINE [Suspect]
     Active Substance: BUPRENORPHINE
  3. PREGABALIN [Suspect]
     Active Substance: PREGABALIN
     Indication: Drug dependence
  4. COCAINE [Suspect]
     Active Substance: COCAINE
     Indication: Drug dependence
  5. 11-NOR-9-CARBOXY-.DELTA-9-TETRAHYDROCANNABINOL [Suspect]
     Active Substance: 11-NOR-9-CARBOXY-.DELTA-9-TETRAHYDROCANNABINOL
  6. DIAZEPAM [Suspect]
     Active Substance: DIAZEPAM
  7. ECGONINE METHYL ESTER [Suspect]
     Active Substance: ECGONINE METHYL ESTER

REACTIONS (4)
  - Brain oedema [Fatal]
  - Visceral congestion [Fatal]
  - Pulmonary oedema [Fatal]
  - Drug abuse [Fatal]
